FAERS Safety Report 17113695 (Version 2)
Quarter: 2019Q4

REPORT INFORMATION
  Report Type: Spontaneous
  Country: US (occurrence: US)
  Receive Date: 20191205
  Receipt Date: 20191213
  Transmission Date: 20200122
  Serious: No
  Sender: FDA-Public Use
  Company Number: US-BIOGEN-2019BI00808419

PATIENT
  Sex: Female
  Weight: 81.27 kg

DRUGS (2)
  1. TECFIDERA [Suspect]
     Active Substance: DIMETHYL FUMARATE
     Dosage: MAINTENANCE DOSE
     Route: 048
     Dates: start: 20191115
  2. TECFIDERA [Suspect]
     Active Substance: DIMETHYL FUMARATE
     Indication: MULTIPLE SCLEROSIS
     Route: 065
     Dates: start: 20191108, end: 20191114

REACTIONS (5)
  - Gastroenteritis viral [Not Recovered/Not Resolved]
  - Flushing [Recovered/Resolved]
  - Multiple sclerosis relapse [Unknown]
  - Aphasia [Recovered/Resolved]
  - Dehydration [Recovered/Resolved]
